FAERS Safety Report 14092537 (Version 1)
Quarter: 2017Q4

REPORT INFORMATION
  Report Type: Spontaneous
  Country: FR (occurrence: FR)
  Receive Date: 20171016
  Receipt Date: 20171016
  Transmission Date: 20180321
  Serious: Yes (Other)
  Sender: FDA-Public Use
  Company Number: FR-BAYER-2017-191275

PATIENT
  Age: 46 Year
  Sex: Female

DRUGS (1)
  1. MIRENA [Suspect]
     Active Substance: LEVONORGESTREL
     Indication: CONTRACEPTION
     Dosage: 20 MCG/24HR, CONT
     Route: 015
     Dates: start: 201111, end: 201409

REACTIONS (11)
  - Migraine [Recovered/Resolved]
  - Depression [Recovered/Resolved]
  - Insomnia [Recovered/Resolved]
  - Anxiety [Recovered/Resolved]
  - Amnesia [Recovered/Resolved]
  - Stress [Recovered/Resolved]
  - Hallucination [Recovered/Resolved]
  - Disturbance in attention [Recovered/Resolved]
  - Libido disorder [Recovered/Resolved]
  - Myalgia [Recovered/Resolved]
  - Diffuse alopecia [Recovered/Resolved]

NARRATIVE: CASE EVENT DATE: 201201
